FAERS Safety Report 8511485-3 (Version None)
Quarter: 2012Q3

REPORT INFORMATION
  Report Type: 
  Country: None (occurrence: None)
  Receive Date: 20120716
  Receipt Date: 20120705
  Transmission Date: 20120928
  Serious: Yes (Other)
  Sender: FDA-Public Use
  Company Number: BR-ASTRAZENECA-2012SE45813

PATIENT
  Sex: Male

DRUGS (4)
  1. METOPROLOL SUCCINATE [Suspect]
     Route: 048
  2. METOPROLOL SUCCINATE [Suspect]
     Indication: HYPERTENSION
     Route: 048
  3. SOMALGIN CARDIO [Concomitant]
  4. SOMALIUM [Concomitant]

REACTIONS (7)
  - INTENTIONAL DRUG MISUSE [None]
  - HYPERHIDROSIS [None]
  - DYSPNOEA [None]
  - PALLOR [None]
  - MUSCULAR WEAKNESS [None]
  - DRUG INEFFECTIVE [None]
  - BLOOD PRESSURE FLUCTUATION [None]
